FAERS Safety Report 4932198-0 (Version None)
Quarter: 2006Q1

REPORT INFORMATION
  Report Type: 
  Country: None (occurrence: None)
  Receive Date: 20060228
  Receipt Date: 20060220
  Transmission Date: 20060701
  Serious: Yes (Other)
  Sender: FDA-Public Use
  Company Number: 2006025295

PATIENT
  Age: 73 Year
  Sex: Male
  Weight: 106.5953 kg

DRUGS (6)
  1. LIPITOR [Suspect]
     Indication: BLOOD CHOLESTEROL INCREASED
     Dosage: 40 MG (40 MG, 1 IN 1 D)
     Dates: start: 19990101
  2. LOPRESSOR [Concomitant]
  3. IRON PREPARATIONS [Concomitant]
  4. HYDROCHLOROTHIAZIDE [Concomitant]
  5. VALTREX [Concomitant]
  6. ZANTAC [Concomitant]

REACTIONS (7)
  - BONE NEOPLASM MALIGNANT [None]
  - CHRONIC OBSTRUCTIVE PULMONARY DISEASE [None]
  - DIABETES MELLITUS NON-INSULIN-DEPENDENT [None]
  - NASOPHARYNGITIS [None]
  - PNEUMONIA [None]
  - PROSTATE CANCER [None]
  - PROSTATIC SPECIFIC ANTIGEN INCREASED [None]
